FAERS Safety Report 25915558 (Version 1)
Quarter: 2025Q4

REPORT INFORMATION
  Report Type: Spontaneous
  Country: EU (occurrence: EU)
  Receive Date: 20251013
  Receipt Date: 20251013
  Transmission Date: 20260117
  Serious: Yes (Other)
  Sender: PFIZER
  Company Number: None

PATIENT
  Sex: Female

DRUGS (3)
  1. SULFASALAZINE [Suspect]
     Active Substance: SULFASALAZINE
     Dosage: 1000 MG, 1X/DAY
     Route: 048
     Dates: start: 20250804, end: 20250804
  2. NEBIVOLOL [Suspect]
     Active Substance: NEBIVOLOL
     Dosage: 10 MG, 1X/DAY
     Route: 048
     Dates: start: 20250804, end: 20250804
  3. NORMABEL [Suspect]
     Active Substance: DIAZEPAM
     Dosage: 3 DF, 1X/DAY
     Route: 048
     Dates: start: 20250804, end: 20250804

REACTIONS (2)
  - Suicide attempt [Unknown]
  - Somnolence [Unknown]

NARRATIVE: CASE EVENT DATE: 20250804
